FAERS Safety Report 7314451-9 (Version None)
Quarter: 2011Q1

REPORT INFORMATION
  Report Type: 
  Country: None (occurrence: None)
  Receive Date: 20110225
  Receipt Date: 20100913
  Transmission Date: 20110831
  Serious: No
  Sender: FDA-Public Use
  Company Number: US-MYLANLABS-2010S1015876

PATIENT
  Age: 21 Year
  Sex: Female
  Weight: 79.38 kg

DRUGS (3)
  1. AMNESTEEM [Suspect]
     Indication: ACNE
     Route: 048
     Dates: start: 20100309, end: 20100803
  2. YAZ /01502501/ [Concomitant]
  3. DITROPAN [Concomitant]

REACTIONS (3)
  - PLEURISY [None]
  - CHEST PAIN [None]
  - NASOPHARYNGITIS [None]
